FAERS Safety Report 5413269-1 (Version None)
Quarter: 2007Q3

REPORT INFORMATION
  Report Type: 
  Country: None (occurrence: None)
  Receive Date: 20070810
  Receipt Date: 20070731
  Transmission Date: 20080115
  Serious: Yes (Other)
  Sender: FDA-Public Use
  Company Number: 17148

PATIENT
  Sex: Female

DRUGS (4)
  1. CARBOPLATIN [Suspect]
     Indication: RETINOBLASTOMA BILATERAL
  2. VINCRISTINE [Suspect]
     Indication: RETINOBLASTOMA BILATERAL
  3. ETOPOSIDE [Suspect]
     Indication: RETINOBLASTOMA BILATERAL
  4. CYCLOPHOSPHAMIDE [Suspect]
     Indication: RETINOBLASTOMA BILATERAL

REACTIONS (3)
  - ACUTE MYELOID LEUKAEMIA [None]
  - ACUTE RESPIRATORY DISTRESS SYNDROME [None]
  - SEPSIS [None]
